FAERS Safety Report 5034595-4 (Version None)
Quarter: 2006Q2

REPORT INFORMATION
  Report Type: 
  Country: None (occurrence: None)
  Receive Date: 20060626
  Receipt Date: 20060403
  Transmission Date: 20061013
  Serious: Yes (Death)
  Sender: FDA-Public Use
  Company Number: CO-ABBOTT-06P-036-0329961-00

PATIENT
  Age: 60 Year
  Sex: Male
  Weight: 60 kg

DRUGS (3)
  1. HUMIRA [Suspect]
     Indication: RHEUMATOID ARTHRITIS
     Route: 058
     Dates: start: 20050808, end: 20060109
  2. METHOTREXATE [Concomitant]
     Indication: RHEUMATOID ARTHRITIS
     Route: 048
     Dates: start: 20010101, end: 20060101
  3. ENALAPRIL [Concomitant]
     Indication: HYPERTENSION
     Dosage: 10/0/10
     Route: 048
     Dates: start: 20020101, end: 20060101

REACTIONS (1)
  - CARDIO-RESPIRATORY ARREST [None]
